FAERS Safety Report 11564849 (Version 1)
Quarter: 2015Q3

REPORT INFORMATION
  Report Type: Spontaneous
  Country: US (occurrence: US)
  Receive Date: 20150916
  Receipt Date: 20150916
  Transmission Date: 20151125
  Serious: No
  Sender: FDA-Public Use
  Company Number: US-ELI_LILLY_AND_COMPANY-US200904001099

PATIENT
  Age: 57 Year
  Sex: Female

DRUGS (3)
  1. VITAMIN D [Concomitant]
     Active Substance: CHOLECALCIFEROL
  2. FORTEO [Suspect]
     Active Substance: TERIPARATIDE
     Dates: start: 200807, end: 200901
  3. CALCIUM [Concomitant]
     Active Substance: CALCIUM

REACTIONS (9)
  - Cough [Recovered/Resolved]
  - Injection site rash [Unknown]
  - Gingival recession [Unknown]
  - Arthralgia [Recovered/Resolved]
  - Vitamin D decreased [Unknown]
  - Fatigue [Recovered/Resolved]
  - Dyspepsia [Unknown]
  - Bone loss [Unknown]
  - Muscle spasms [Unknown]

NARRATIVE: CASE EVENT DATE: 200901
